FAERS Safety Report 6309183-X (Version None)
Quarter: 2009Q3

REPORT INFORMATION
  Report Type: 
  Country: None (occurrence: None)
  Receive Date: 20090814
  Receipt Date: 20090619
  Transmission Date: 20100115
  Serious: No
  Sender: FDA-Public Use
  Company Number: A0792513A

PATIENT
  Age: 68 Year
  Sex: Female

DRUGS (4)
  1. COREG CR [Suspect]
     Indication: HYPERTENSION
     Dosage: 40MG PER DAY
     Route: 048
     Dates: start: 20090301
  2. HYZAAR [Concomitant]
  3. CADUET [Concomitant]
  4. ALTACE [Concomitant]

REACTIONS (1)
  - DEPRESSION [None]
